FAERS Safety Report 8293362-9 (Version None)
Quarter: 2012Q2

REPORT INFORMATION
  Report Type: 
  Country: None (occurrence: None)
  Receive Date: 20120417
  Receipt Date: 20120117
  Transmission Date: 20120825
  Serious: No
  Sender: FDA-Public Use
  Company Number: US-ASTRAZENECA-2011SE79024

PATIENT
  Age: 68 Year
  Sex: Female
  Weight: 79.4 kg

DRUGS (8)
  1. KLOR-CON [Concomitant]
  2. PROPAFENONE HCL [Concomitant]
  3. DILTIAZEM HCL [Concomitant]
  4. MAXZIDE [Concomitant]
  5. LIPITOR [Concomitant]
  6. NEXIUM [Suspect]
     Indication: GASTROOESOPHAGEAL REFLUX DISEASE
     Route: 048
     Dates: start: 20060101
  7. DIOVAN [Concomitant]
  8. WARFARIN SODIUM [Concomitant]

REACTIONS (5)
  - VOMITING [None]
  - GASTROINTESTINAL SOUNDS ABNORMAL [None]
  - GASTROOESOPHAGEAL REFLUX DISEASE [None]
  - FLATULENCE [None]
  - DRUG INEFFECTIVE [None]
